FAERS Safety Report 6917670-6 (Version None)
Quarter: 2010Q3

REPORT INFORMATION
  Report Type: 
  Country: None (occurrence: None)
  Receive Date: 20100810
  Receipt Date: 20100722
  Transmission Date: 20110219
  Serious: Yes (Hospitalization)
  Sender: FDA-Public Use
  Company Number: PHHY2010MX48300

PATIENT
  Sex: Female
  Weight: 71 kg

DRUGS (3)
  1. ZELMAC [Suspect]
     Indication: IRRITABLE BOWEL SYNDROME
     Dosage: 1 TABLET OF 6 MG DAILY
     Route: 048
     Dates: start: 20100601, end: 20100608
  2. ZELMAC [Suspect]
     Dosage: 1 TABLET OF 6 MG DAILY
     Route: 048
     Dates: start: 20100630
  3. OMEPRAZOLE [Concomitant]
     Dosage: 1 TABLET DAILY
     Route: 048
     Dates: start: 20100601

REACTIONS (4)
  - ABDOMINAL DISTENSION [None]
  - ABDOMINAL PAIN [None]
  - CONSTIPATION [None]
  - UMBILICAL HERNIA REPAIR [None]
